FAERS Safety Report 19594195 (Version 1)
Quarter: 2021Q3

REPORT INFORMATION
  Report Type: Spontaneous
  Country: DE (occurrence: DE)
  Receive Date: 20210722
  Receipt Date: 20210722
  Transmission Date: 20211014
  Serious: Yes (Hospitalization)
  Sender: FDA-Public Use
  Company Number: DE-ACCORD-232508

PATIENT
  Age: 80 Year
  Sex: Female

DRUGS (13)
  1. DIGITOXIN [Concomitant]
     Active Substance: DIGITOXIN
     Dosage: 0.05 MG, 1?0?0?0, TABLET
     Route: 048
  2. DIMENHYDRINATE. [Concomitant]
     Active Substance: DIMENHYDRINATE
     Dosage: 50 MG, IF NECESSARY A MAXIMUM OF 3 IN 24H, TABLET
     Route: 048
  3. FUROSEMIDE. [Concomitant]
     Active Substance: FUROSEMIDE
     Dosage: 40 MG, IF NECESSARY, TABLET
     Route: 048
  4. LACTULOSE. [Concomitant]
     Active Substance: LACTULOSE
     Dosage: 3.335, 5 G / ML, 10ML IF NECESSARY IN 24H, SYRUP
     Route: 048
  5. CARBIMAZOLE [Concomitant]
     Active Substance: CARBIMAZOLE
     Dosage: 5 MG, 0.5?0?0?0, TABLET
     Route: 048
  6. APIXABAN [Suspect]
     Active Substance: APIXABAN
     Indication: PRODUCT USED FOR UNKNOWN INDICATION
     Dosage: 2.5 MG, 1?0?1?0, TABLET
     Route: 048
  7. LOPERAMIDE [Concomitant]
     Active Substance: LOPERAMIDE
     Dosage: 2 MG, IF NECESSARY A MAXIMUM OF 2 IN 24H, TABLET
     Route: 048
  8. HEDERA HELIX [Concomitant]
     Active Substance: HEDERA HELIX FLOWERING TWIG\HERBALS
     Dosage: 35, 5 MG / ML, IF NECESSARY, SYRUP
     Route: 048
  9. CANDESARTAN. [Concomitant]
     Active Substance: CANDESARTAN
     Dosage: 8 MG, 0.5?0?0?0, TABLET
     Route: 048
  10. PROPRANOLOL [Concomitant]
     Active Substance: PROPRANOLOL HYDROCHLORIDE
     Dosage: 10 MG, 1?1?1?0, TABLET
     Route: 048
  11. IBUPROFEN. [Suspect]
     Active Substance: IBUPROFEN
     Indication: PRODUCT USED FOR UNKNOWN INDICATION
     Dosage: 600 MG, SINCE 1D IMPLEMENTED ON DEMAND MEDICATION UP TO 3 PIECES PER?DAY IN THE EVENING
     Route: 048
  12. PANTOPRAZOLE [Concomitant]
     Active Substance: PANTOPRAZOLE
     Dosage: 40 MG, 1?0?1?0, TABLET
     Route: 048
  13. TILIDINE [Concomitant]
     Active Substance: TILIDINE
     Dosage: 8, 100 MG, IF NECESSARY 1 IN 24H, TABLET
     Route: 048

REACTIONS (3)
  - Medication error [Unknown]
  - Nausea [Not Recovered/Not Resolved]
  - Fall [Unknown]
